FAERS Safety Report 25910496 (Version 1)
Quarter: 2025Q4

REPORT INFORMATION
  Report Type: Spontaneous
  Country: US (occurrence: US)
  Receive Date: 20251012
  Receipt Date: 20251012
  Transmission Date: 20260118
  Serious: Yes (Hospitalization)
  Sender: ALEXION PHARMACEUTICALS
  Company Number: US-ASTRAZENECA-202510NAM007630US

PATIENT
  Sex: Male

DRUGS (1)
  1. CRESTOR [Suspect]
     Active Substance: ROSUVASTATIN CALCIUM
     Dosage: 40 MILLIGRAM
     Route: 065

REACTIONS (6)
  - Renal failure [Unknown]
  - Hepatic failure [Unknown]
  - Brain fog [Unknown]
  - Confusional state [Unknown]
  - Muscle atrophy [Unknown]
  - Illness [Unknown]
